FAERS Safety Report 23907184 (Version 1)
Quarter: 2024Q2

REPORT INFORMATION
  Report Type: Report from Study
  Country: US (occurrence: US)
  Receive Date: 20240528
  Receipt Date: 20240528
  Transmission Date: 20240715
  Serious: Yes (Hospitalization, Other)
  Sender: FDA-Public Use
  Company Number: US-GILEAD-2024-0673514

PATIENT
  Age: 38 Year
  Sex: Female

DRUGS (2)
  1. AZTREONAM LYSINE [Suspect]
     Active Substance: AZTREONAM LYSINE
     Indication: Bronchiectasis
     Dosage: 75 MG, TID (RECONSTITUTE WITH DILUENT VIA PARI ALTERA NEBULIZER FOR 28 DAYS ON AND 28 DAYS OFF)
     Route: 055
     Dates: start: 202105
  2. AZTREONAM LYSINE [Suspect]
     Active Substance: AZTREONAM LYSINE
     Indication: Infective exacerbation of bronchiectasis

REACTIONS (2)
  - Cystic fibrosis [Unknown]
  - Off label use [Not Recovered/Not Resolved]
